FAERS Safety Report 8968238 (Version 2)
Quarter: 2013Q2

REPORT INFORMATION
  Report Type: Spontaneous
  Country: BR (occurrence: BR)
  Receive Date: 20121218
  Receipt Date: 20130524
  Transmission Date: 20140414
  Serious: Yes (Hospitalization, Other)
  Sender: FDA-Public Use
  Company Number: BR-JNJFOC-20121203985

PATIENT
  Age: 80 Year
  Sex: Male

DRUGS (1)
  1. ZYTIGA [Suspect]
     Indication: PROSTATE CANCER
     Route: 048
     Dates: start: 201208, end: 201211

REACTIONS (5)
  - Coma [Unknown]
  - Fracture [Unknown]
  - Fall [Not Recovered/Not Resolved]
  - Craniocerebral injury [Unknown]
  - Cerebral haematoma [Unknown]
